FAERS Safety Report 18819840 (Version 3)
Quarter: 2021Q1

REPORT INFORMATION
  Report Type: Spontaneous
  Country: JP (occurrence: JP)
  Receive Date: 20210202
  Receipt Date: 20210210
  Transmission Date: 20210419
  Serious: Yes (Death)
  Sender: FDA-Public Use
  Company Number: JP-ROCHE-2758380

PATIENT
  Age: 49 Year
  Sex: Male
  Weight: 83 kg

DRUGS (4)
  1. HEMLIBRA [Suspect]
     Active Substance: EMICIZUMAB-KXWH
     Indication: HAEMOPHILIA A WITHOUT INHIBITORS
     Dosage: 300MG/DOSE ONCE EVERY TWO WEEKS, 210MG/DOSE ONCE EVERY TWO WEEKS
     Route: 058
     Dates: start: 20190614, end: 20190712
  2. KETOPROFEN. [Concomitant]
     Active Substance: KETOPROFEN
     Route: 061
     Dates: start: 20151226, end: 20201228
  3. DEPAS (JAPAN) [Concomitant]
     Route: 048
     Dates: start: 20141226, end: 20201228
  4. HEMLIBRA [Suspect]
     Active Substance: EMICIZUMAB-KXWH
     Dosage: 450MG/DOSE ONCE EVERY FOUR WEEKS, 60MG/DOSE ONCE EVERY FOUR WEEKS
     Route: 058
     Dates: start: 20190809, end: 20210101

REACTIONS (1)
  - Brain stem haemorrhage [Fatal]

NARRATIVE: CASE EVENT DATE: 20210115
